FAERS Safety Report 24953038 (Version 2)
Quarter: 2025Q1

REPORT INFORMATION
  Report Type: Spontaneous
  Country: US (occurrence: None)
  Receive Date: 20250211
  Receipt Date: 20250303
  Transmission Date: 20250409
  Serious: No
  Sender: UMEDICA LABS
  Company Number: US-Umedica-000628

PATIENT
  Age: 69 Year
  Sex: Female

DRUGS (5)
  1. ROSUVASTATIN CALCIUM [Suspect]
     Active Substance: ROSUVASTATIN CALCIUM
     Indication: Blood cholesterol
     Dosage: ONE TABLET AT BED TIME
     Dates: start: 20250118
  2. XARELTO [Concomitant]
     Active Substance: RIVAROXABAN
     Indication: Pulmonary embolism
     Dosage: IN THE MORNING AFTER BREAKFAST
     Route: 048
  3. MAGNESIUM CITRATE [Concomitant]
     Active Substance: MAGNESIUM CITRATE
     Indication: Magnesium deficiency
  4. ROSUVASTATIN CALCIUM [Suspect]
     Active Substance: ROSUVASTATIN CALCIUM
     Indication: Low density lipoprotein
     Dates: start: 20250118
  5. MAGNESIUM CITRATE [Concomitant]
     Active Substance: MAGNESIUM CITRATE

REACTIONS (6)
  - Blood magnesium decreased [Unknown]
  - Dyspepsia [Unknown]
  - Constipation [Unknown]
  - Headache [Recovering/Resolving]
  - Abdominal pain upper [Recovering/Resolving]
  - Nausea [Recovered/Resolved]

NARRATIVE: CASE EVENT DATE: 20250101
